FAERS Safety Report 5517166-2 (Version None)
Quarter: 2007Q4

REPORT INFORMATION
  Report Type: 
  Country: None (occurrence: None)
  Receive Date: 20071114
  Receipt Date: 20071106
  Transmission Date: 20080405
  Serious: Yes (Life-Threatening, Hospitalization)
  Sender: FDA-Public Use
  Company Number: ES-ROCHE-530025

PATIENT
  Age: 40 Year
  Sex: Female

DRUGS (5)
  1. DILUTOL [Suspect]
     Indication: HYPERTENSION
     Route: 048
     Dates: start: 20070809, end: 20070817
  2. ZYLORIC [Suspect]
     Indication: HYPERURICAEMIA
     Route: 048
     Dates: start: 20070809, end: 20070817
  3. DOGMATIL [Suspect]
     Indication: VERTIGO
     Route: 065
     Dates: start: 20070815
  4. SIMVASTATIN [Suspect]
     Indication: HYPERCHOLESTEROLAEMIA
     Route: 065
     Dates: start: 20070809, end: 20070817
  5. PAROXETIN [Concomitant]
     Indication: DEPRESSION
     Dates: start: 20030123, end: 20070817

REACTIONS (5)
  - COAGULOPATHY [None]
  - RENAL HAEMORRHAGE [None]
  - RESPIRATORY FAILURE [None]
  - SEPTIC SHOCK [None]
  - TOXIC EPIDERMAL NECROLYSIS [None]
